FAERS Safety Report 4969108-6 (Version None)
Quarter: 2006Q2

REPORT INFORMATION
  Report Type: 
  Country: None (occurrence: None)
  Receive Date: 20060411
  Receipt Date: 20060320
  Transmission Date: 20061013
  Serious: Yes (Hospitalization)
  Sender: FDA-Public Use
  Company Number: JP-MERCK-0603USA04238

PATIENT
  Age: 71 Year
  Sex: Female

DRUGS (9)
  1. PEPCID [Suspect]
     Indication: GASTRITIS
     Route: 048
     Dates: start: 20050716, end: 20051216
  2. ALESION [Suspect]
     Indication: RHINITIS ALLERGIC
     Route: 065
     Dates: start: 20050927, end: 20051216
  3. CIBENOL [Suspect]
     Indication: ATRIAL FIBRILLATION
     Route: 048
     Dates: start: 20051112, end: 20051216
  4. MOBIC [Suspect]
     Indication: OSTEOARTHRITIS
     Route: 048
     Dates: start: 20050716, end: 20051216
  5. GRANDAXIN [Concomitant]
     Indication: AUTONOMIC NERVOUS SYSTEM IMBALANCE
     Route: 048
     Dates: start: 20050716
  6. ZOLPIDEM TARTRATE [Concomitant]
     Indication: INSOMNIA
     Route: 048
     Dates: start: 20041005
  7. PURSENNID [Concomitant]
     Indication: CONSTIPATION
     Route: 048
     Dates: start: 20041005
  8. SUNRYTHM [Suspect]
     Indication: ATRIAL FIBRILLATION
     Route: 048
     Dates: start: 20051028, end: 20051112
  9. RYTHMODAN [Suspect]
     Route: 065

REACTIONS (6)
  - ALANINE AMINOTRANSFERASE INCREASED [None]
  - ASPARTATE AMINOTRANSFERASE INCREASED [None]
  - ATRIAL FIBRILLATION [None]
  - LIVER DISORDER [None]
  - MALAISE [None]
  - THIRST [None]
